FAERS Safety Report 9286081 (Version 1)
Quarter: 2013Q2

REPORT INFORMATION
  Report Type: Spontaneous
  Country: US (occurrence: None)
  Receive Date: 20130510
  Receipt Date: 20130510
  Transmission Date: 20140414
  Serious: No
  Sender: FDA-Public Use
  Company Number: None

PATIENT
  Age: 43 Year
  Sex: Female
  Weight: 82.9 kg

DRUGS (1)
  1. FERUMOXYTOL [Suspect]
     Indication: ANAEMIA
     Dosage: MG
     Dates: start: 20130508, end: 20130508

REACTIONS (5)
  - Nausea [None]
  - Vomiting [None]
  - Hypertension [None]
  - Pain [None]
  - Abdominal pain [None]
